FAERS Safety Report 8525633-2 (Version None)
Quarter: 2012Q3

REPORT INFORMATION
  Report Type: 
  Country: None (occurrence: None)
  Receive Date: 20120720
  Receipt Date: 20120713
  Transmission Date: 20120928
  Serious: Yes (Other)
  Sender: FDA-Public Use
  Company Number: NL-PFIZER INC-2012170103

PATIENT
  Age: 39 Year
  Sex: Female

DRUGS (1)
  1. MEDROXYPROGESTERONE ACETATE [Suspect]
     Indication: CONTRACEPTION
     Dosage: UNK
     Dates: start: 20120123, end: 20120123

REACTIONS (4)
  - INJECTION SITE INDURATION [None]
  - LIPODYSTROPHY ACQUIRED [None]
  - INJECTION SITE PAIN [None]
  - INJECTION SITE ATROPHY [None]
